FAERS Safety Report 7237815-0 (Version None)
Quarter: 2011Q1

REPORT INFORMATION
  Report Type: 
  Country: None (occurrence: None)
  Receive Date: 20110121
  Receipt Date: 20110114
  Transmission Date: 20110831
  Serious: Yes (Other)
  Sender: FDA-Public Use
  Company Number: SE-ROCHE-753354

PATIENT
  Age: 37 Year
  Sex: Male

DRUGS (1)
  1. ROACTEMRA [Suspect]
     Dosage: PATIENT HAS RECEIVED 4 ROACTEMRA INFUSIONS.
     Route: 065

REACTIONS (1)
  - THROMBOSIS [None]
